FAERS Safety Report 10087953 (Version 2)
Quarter: 2014Q2

REPORT INFORMATION
  Report Type: Spontaneous
  Country: AU (occurrence: AU)
  Receive Date: 20140419
  Receipt Date: 20140605
  Transmission Date: 20141212
  Serious: Yes (Other)
  Sender: FDA-Public Use
  Company Number: AU-ROCHE-1385748

PATIENT
  Age: 69 Year
  Sex: Male
  Weight: 128.7 kg

DRUGS (14)
  1. MABTHERA [Suspect]
     Indication: LYMPHOMA
     Route: 042
     Dates: start: 2010
  2. MABTHERA [Suspect]
     Route: 042
     Dates: start: 20140120
  3. DOXORUBICIN HYDROCHLORIDE [Concomitant]
     Route: 065
     Dates: start: 2010
  4. VINCRISTINE SULFATE [Concomitant]
     Route: 065
     Dates: start: 2010
  5. CYCLOPHOSPHAMIDE [Concomitant]
     Route: 065
     Dates: start: 2010
  6. PREDNISONE [Concomitant]
     Route: 065
     Dates: start: 2010
  7. CORDILOX SR [Concomitant]
     Dosage: STARTED ON ADMISSION
     Route: 048
  8. NEXIUM [Concomitant]
     Dosage: STARTED ON ADMISSION
     Route: 048
  9. DUODART [Concomitant]
     Dosage: 400/500 UNIT NOT REPORTED DAILY. STARTED ON ADMISSION
     Route: 048
  10. DURO-K [Concomitant]
     Dosage: STARTED ON ADMISSION
     Route: 048
  11. RAMIPRIL [Concomitant]
     Dosage: STARTED ON ADMISSION
     Route: 048
  12. ATORVASTATIN [Concomitant]
     Dosage: STARTED ON ADMISSION
     Route: 065
  13. UREMIDE [Concomitant]
     Dosage: STARTED ON ADMISSION
     Route: 065
  14. DIABEX XR [Concomitant]
     Dosage: STARTED ON ADMISSION
     Route: 065

REACTIONS (6)
  - Non-Hodgkin^s lymphoma recurrent [Unknown]
  - Anaphylactic reaction [Unknown]
  - Atrial fibrillation [Unknown]
  - Bundle branch block right [Unknown]
  - Wheezing [Recovered/Resolved]
  - Hyperhidrosis [Recovered/Resolved]
